FAERS Safety Report 6362513-5 (Version None)
Quarter: 2009Q3

REPORT INFORMATION
  Report Type: 
  Country: None (occurrence: None)
  Receive Date: 20090918
  Receipt Date: 20090531
  Transmission Date: 20100115
  Serious: No
  Sender: FDA-Public Use
  Company Number: US-ABBOTT-09P-163-0576896-00

PATIENT
  Sex: Male
  Weight: 80.358 kg

DRUGS (4)
  1. HUMIRA [Suspect]
     Indication: PSORIASIS
     Dosage: DAY 1
     Dates: start: 20090406, end: 20090518
  2. HUMIRA [Suspect]
     Dates: start: 20090527
  3. UNKNOWN PRESCRIPTION CREAMS [Concomitant]
     Indication: SKIN DISORDER
  4. UNKNOWN PRESCRIPTION CREAMS [Concomitant]
     Indication: PRURITUS

REACTIONS (3)
  - DRUG DOSE OMISSION [None]
  - PRURITUS [None]
  - RASH [None]
